FAERS Safety Report 9031156 (Version 2)
Quarter: 2013Q2

REPORT INFORMATION
  Report Type: Spontaneous
  Country: US (occurrence: US)
  Receive Date: 20130123
  Receipt Date: 20130610
  Transmission Date: 20140414
  Serious: Yes (Hospitalization)
  Sender: FDA-Public Use
  Company Number: US-ELI_LILLY_AND_COMPANY-US201301003731

PATIENT
  Age: 70 Year
  Sex: Female

DRUGS (25)
  1. FORTEO [Suspect]
     Indication: OSTEOPOROSIS
     Dosage: 20 UG, QD
     Dates: start: 20121218
  2. FORTEO [Suspect]
     Dosage: 20 UG, QD
     Dates: start: 20121218
  3. COZAAR [Concomitant]
     Dosage: UNK
  4. IMDUR [Concomitant]
     Dosage: UNK
  5. PLAVIX [Concomitant]
     Dosage: UNK
  6. BABY ASPIRIN [Concomitant]
     Dosage: UNK
  7. COREG [Concomitant]
     Dosage: UNK
  8. PACERONE [Concomitant]
     Dosage: UNK
  9. FUROSEMIDE [Concomitant]
     Indication: DIURETIC THERAPY
     Dosage: UNK
  10. VENTILAN [Concomitant]
     Dosage: UNK
  11. ALBUTEROL SULFATE [Concomitant]
     Dosage: UNK
  12. BUDESONIDE [Concomitant]
     Dosage: UNK
  13. SINGULAIR [Concomitant]
     Dosage: UNK
  14. SPIRIVA [Concomitant]
     Dosage: UNK
  15. CYMBALTA [Concomitant]
     Dosage: UNK
  16. CYCLOBENZAPRINE [Concomitant]
     Dosage: UNK
  17. LUNESTA [Concomitant]
     Dosage: UNK
  18. ULTRAM [Concomitant]
     Dosage: UNK
  19. ALPHAGAN [Concomitant]
     Dosage: UNK
  20. MIRAPEX [Concomitant]
     Dosage: UNK
  21. DEXALIN [Concomitant]
     Dosage: UNK
  22. KLOR-CON M20 [Concomitant]
     Dosage: UNK
  23. LEVOTHYROXINE [Concomitant]
     Dosage: UNK
  24. FLUTICASONE [Concomitant]
     Dosage: UNK
  25. PREDNISONE [Concomitant]
     Dosage: UNK

REACTIONS (5)
  - Rectal haemorrhage [Unknown]
  - Haematochezia [Unknown]
  - Injection site pain [Unknown]
  - Injection site bruising [Unknown]
  - Injection site discolouration [Unknown]
